FAERS Safety Report 21207001 (Version 2)
Quarter: 2022Q4

REPORT INFORMATION
  Report Type: Spontaneous
  Country: DE (occurrence: DE)
  Receive Date: 20220812
  Receipt Date: 20221007
  Transmission Date: 20230112
  Serious: Yes (Other)
  Sender: FDA-Public Use
  Company Number: DE-BRISTOL-MYERS SQUIBB COMPANY-2022-086165

PATIENT
  Age: 57 Year
  Sex: Female

DRUGS (6)
  1. OPDIVO [Suspect]
     Active Substance: NIVOLUMAB
     Indication: Malignant melanoma
     Dosage: DOSE : 3MG/KG BODY WEIGHT;     FREQ : EVERY 3 WEEKS
     Route: 065
     Dates: start: 201902
  2. DABRAFENIB [Concomitant]
     Active Substance: DABRAFENIB
     Indication: Product used for unknown indication
     Route: 065
     Dates: start: 201906
  3. DABRAFENIB [Concomitant]
     Active Substance: DABRAFENIB
     Dosage: DOSE REDUCED BY 50%
     Route: 065
     Dates: start: 201907, end: 201907
  4. TRAMETINIB [Concomitant]
     Active Substance: TRAMETINIB
     Indication: Product used for unknown indication
     Route: 065
     Dates: start: 201906, end: 201907
  5. BINIMETINIB;ENCORAFENIB [Concomitant]
     Indication: Product used for unknown indication
     Route: 065
     Dates: start: 201907, end: 201910
  6. BINIMETINIB;ENCORAFENIB [Concomitant]
     Dosage: REINTRODUCTION TO 1ST REDUCTION DOSE
     Route: 065

REACTIONS (4)
  - Cytokine release syndrome [Unknown]
  - Malignant neoplasm progression [Unknown]
  - Sarcoid-like reaction [Unknown]
  - Intentional product use issue [Unknown]

NARRATIVE: CASE EVENT DATE: 20190101
